FAERS Safety Report 4446692-2 (Version None)
Quarter: 2004Q3

REPORT INFORMATION
  Report Type: 
  Country: None (occurrence: None)
  Receive Date: 20040908
  Receipt Date: 20040827
  Transmission Date: 20050211
  Serious: Yes (Life-Threatening)
  Sender: FDA-Public Use
  Company Number: 04H-167-0271850-00

PATIENT
  Age: 43 Year
  Sex: Male
  Weight: 22 kg

DRUGS (5)
  1. ATRACURIUM BESYLATE [Suspect]
     Indication: ANAESTHESIA
     Dosage: 30 MG, INTRAVENOUS
     Route: 042
  2. PROPOFOL [Suspect]
     Indication: ANAESTHESIA
     Dosage: 150 MG, INTRAVENOUS
     Route: 042
  3. GENTAMYCIN SULFATE [Suspect]
     Indication: INFECTION
     Dosage: 120 MG, INTRAVENOUS
     Route: 042
  4. OXYGEN [Concomitant]
  5. ISOFLURANE [Concomitant]

REACTIONS (7)
  - ANAPHYLACTIC REACTION [None]
  - CARDIAC DISORDER [None]
  - CIRCULATORY COLLAPSE [None]
  - PULMONARY OEDEMA [None]
  - PULSE ABSENT [None]
  - VENTRICULAR FIBRILLATION [None]
  - VENTRICULAR TACHYCARDIA [None]
